FAERS Safety Report 11558590 (Version 1)
Quarter: 2015Q3

REPORT INFORMATION
  Report Type: Other
  Country: GB (occurrence: GB)
  Receive Date: 20150928
  Receipt Date: 20150928
  Transmission Date: 20151125
  Serious: Yes (Other)
  Sender: FDA-Public Use
  Company Number: GB-SUN PHARMACEUTICAL INDUSTRIES LTD-2012SUN00180

PATIENT
  Age: 50 Year
  Sex: Male

DRUGS (4)
  1. DIHYDROCODEINE [Concomitant]
     Active Substance: DIHYDROCODEINE
     Dosage: UNK, PRN
  2. CARBAMAZEPINE. [Concomitant]
     Active Substance: CARBAMAZEPINE
     Dosage: 200 MG, BID
     Route: 048
  3. SERETIDE [Concomitant]
     Active Substance: FLUTICASONE FUROATE\SALMETEROL XINAFOATE
     Dosage: ROUTE -INHALATION
  4. OLANZAPINE 5 MG TABLETS [Suspect]
     Active Substance: OLANZAPINE
     Indication: PRODUCT USED FOR UNKNOWN INDICATION
     Dosage: 20 MG, UNK
     Route: 048

REACTIONS (2)
  - Blood prolactin increased [Recovered/Resolved]
  - Pituitary tumour benign [Recovered/Resolved]

NARRATIVE: CASE EVENT DATE: 201105
